FAERS Safety Report 6430310-8 (Version None)
Quarter: 2009Q4

REPORT INFORMATION
  Report Type: 
  Country: None (occurrence: None)
  Receive Date: 20091106
  Receipt Date: 20091028
  Transmission Date: 20100525
  Serious: Yes (Hospitalization, Other)
  Sender: FDA-Public Use
  Company Number: US-ABBOTT-09P-163-0605448-00

PATIENT
  Sex: Male

DRUGS (6)
  1. DEPAKOTE [Suspect]
     Indication: DRUG USE FOR UNKNOWN INDICATION
  2. KEPPRA [Concomitant]
     Indication: DRUG USE FOR UNKNOWN INDICATION
  3. PHENOBARBITAL [Concomitant]
     Indication: DRUG USE FOR UNKNOWN INDICATION
  4. BENZODIAZEPINE [Concomitant]
     Indication: DRUG USE FOR UNKNOWN INDICATION
  5. PHENYTOIN [Concomitant]
     Indication: DRUG USE FOR UNKNOWN INDICATION
  6. OTHER UNKNOWN MEDICATIONS [Concomitant]
     Indication: DRUG USE FOR UNKNOWN INDICATION

REACTIONS (3)
  - DRUG LEVEL FLUCTUATING [None]
  - GASTROINTESTINAL TUBE INSERTION [None]
  - HYPONATRAEMIA [None]
